FAERS Safety Report 15691615 (Version 1)
Quarter: 2018Q4

REPORT INFORMATION
  Report Type: Report from Study
  Country: US (occurrence: US)
  Receive Date: 20181205
  Receipt Date: 20181205
  Transmission Date: 20190205
  Serious: Yes (Other)
  Sender: FDA-Public Use
  Company Number: US-BAYER-2018-217731

PATIENT
  Age: 64 Year
  Sex: Female

DRUGS (11)
  1. ALBUTEROL [SALBUTAMOL SULFATE] [Concomitant]
  2. ATORVASTATIN CALCIUM. [Concomitant]
     Active Substance: ATORVASTATIN CALCIUM
  3. NITROGLYN [Concomitant]
     Active Substance: NITROGLYCERIN
  4. SYMBICORT [Concomitant]
     Active Substance: BUDESONIDE\FORMOTEROL FUMARATE DIHYDRATE
  5. TUMS PLUS [Concomitant]
  6. ASPIRIN [ACETYLSALICYLIC ACID] [Concomitant]
     Active Substance: ASPIRIN
  7. MUCINEX [Concomitant]
     Active Substance: GUAIFENESIN
  8. METFORMIN [Concomitant]
     Active Substance: METFORMIN HYDROCHLORIDE
  9. STIVARGA [Suspect]
     Active Substance: REGORAFENIB
     Indication: RECTAL CANCER
     Dosage: 160 MG MORNING X 21 DAYS, 7 DAY OFF
     Route: 048
     Dates: start: 20181119
  10. NORCO [Concomitant]
     Active Substance: ACETAMINOPHEN\HYDROCODONE BITARTRATE
  11. FAMOTIDINE. [Concomitant]
     Active Substance: FAMOTIDINE

REACTIONS (9)
  - Vomiting [Unknown]
  - Pyrexia [Unknown]
  - Pyrexia [None]
  - Insomnia [Unknown]
  - Chills [Unknown]
  - Nausea [Unknown]
  - Chills [None]
  - Feeling cold [Unknown]
  - Urinary tract infection [None]

NARRATIVE: CASE EVENT DATE: 20181124
